FAERS Safety Report 4928188-4 (Version None)
Quarter: 2006Q1

REPORT INFORMATION
  Report Type: 
  Country: None (occurrence: None)
  Receive Date: 20060223
  Receipt Date: 20060203
  Transmission Date: 20060701
  Serious: Yes (Death, Other)
  Sender: FDA-Public Use
  Company Number: FI200602001190

PATIENT
  Age: 43 Year
  Sex: Female

DRUGS (3)
  1. ZYPREXA [Suspect]
     Indication: MAJOR DEPRESSION
     Dosage: 15 MG, DAILY (1/D), ORAL
     Route: 048
     Dates: start: 20051004, end: 20051115
  2. ESCITALOPRAM (ESCITALOPRAM) [Concomitant]
  3. STILNOCT (ZOLPIDEM TARTRATE) [Concomitant]

REACTIONS (9)
  - CARDIAC ARREST [None]
  - DIPLOPIA [None]
  - DYSPHAGIA [None]
  - DYSPNOEA EXERTIONAL [None]
  - HYPERVENTILATION [None]
  - PELVIC VENOUS THROMBOSIS [None]
  - PULMONARY EMBOLISM [None]
  - SLEEP APNOEA SYNDROME [None]
  - SYNCOPE [None]
